FAERS Safety Report 20775077 (Version 1)
Quarter: 2022Q2

REPORT INFORMATION
  Report Type: Report from Study
  Country: CN (occurrence: CN)
  Receive Date: 20220502
  Receipt Date: 20220502
  Transmission Date: 20220721
  Serious: Yes (Other)
  Sender: FDA-Public Use
  Company Number: CN-BRISTOL-MYERS SQUIBB COMPANY-BMS-2022-028697

PATIENT
  Age: 60 Year
  Sex: Male

DRUGS (3)
  1. NIVOLUMAB [Suspect]
     Active Substance: NIVOLUMAB
     Indication: Gastric cancer
     Dosage: 240 MILLIGRAM, Q2WK
     Route: 041
     Dates: start: 20210604
  2. NIVOLUMAB [Suspect]
     Active Substance: NIVOLUMAB
     Dosage: 360 MILLIGRAM, Q3WK
     Route: 041
  3. NIVOLUMAB [Suspect]
     Active Substance: NIVOLUMAB
     Dosage: 240 MILLIGRAM, Q2WK
     Route: 041
     Dates: start: 20210604

REACTIONS (2)
  - Neoplasm progression [Unknown]
  - Malignant neoplasm progression [Unknown]

NARRATIVE: CASE EVENT DATE: 20220218
